FAERS Safety Report 16634794 (Version 1)
Quarter: 2019Q3

REPORT INFORMATION
  Report Type: Spontaneous
  Country: DE (occurrence: DE)
  Receive Date: 20190726
  Receipt Date: 20190726
  Transmission Date: 20191004
  Serious: Yes (Hospitalization, Disabling)
  Sender: FDA-Public Use
  Company Number: DE-TEVA-2019-DE-1083068

PATIENT
  Age: 48 Year
  Sex: Female
  Weight: 56 kg

DRUGS (5)
  1. VANCOMYCIN [Suspect]
     Active Substance: VANCOMYCIN
     Indication: SEPSIS
     Dosage: DAILY DOSE: 2 G GRAM(S) EVERY DAYS
     Route: 042
     Dates: start: 20190616, end: 20190621
  2. PANTOPRAZOL [Concomitant]
     Active Substance: PANTOPRAZOLE SODIUM
     Indication: PROPHYLAXIS
     Dosage: DAILY DOSE: 1 DF DOSAGE FORM EVERY DAYS
     Route: 048
     Dates: start: 20190609, end: 20190628
  3. CEFUROXIM [Concomitant]
     Active Substance: CEFUROXIME
     Indication: SEPSIS
     Dosage: DAILY DOSE: 1000 MG MILLGRAM(S) EVERY DAYS 2 SEPARATED DOSES
     Route: 048
     Dates: start: 20190621, end: 20190626
  4. PIPERACILLIN/TAZOBACTAM [Concomitant]
     Active Substance: PIPERACILLIN SODIUM\TAZOBACTAM SODIUM
     Indication: SEPSIS
     Dosage: DAILY DOSE: 13.5 G GRAM(S) EVERY DAYS 3 SEPARATED DOSES
     Route: 042
     Dates: start: 20190614, end: 20190621
  5. ACICLOVIR [Concomitant]
     Active Substance: ACYCLOVIR
     Dosage: DAILY DOSE: 500 MG MILLGRAM(S) EVERY DAYS
     Route: 042
     Dates: start: 20190609, end: 20190628

REACTIONS (1)
  - Acute kidney injury [Not Recovered/Not Resolved]

NARRATIVE: CASE EVENT DATE: 20190621
